FAERS Safety Report 9677205 (Version 1)
Quarter: 2013Q4

REPORT INFORMATION
  Report Type: Spontaneous
  Country: US (occurrence: US)
  Receive Date: 20131108
  Receipt Date: 20131108
  Transmission Date: 20140711
  Serious: Yes (Hospitalization, Other)
  Sender: FDA-Public Use
  Company Number: US-AMGEN-USASP2013077870

PATIENT
  Age: 58 Year
  Sex: Female

DRUGS (3)
  1. PROLIA [Suspect]
     Indication: OSTEOPOROSIS POSTMENOPAUSAL
     Dosage: UNK
     Route: 065
     Dates: start: 20121011
  2. SAVELLA [Concomitant]
     Indication: FIBROMYALGIA
  3. PRILOSEC                           /00661201/ [Concomitant]

REACTIONS (6)
  - Thrombosis [Unknown]
  - Knee operation [Unknown]
  - Nodule [Unknown]
  - Contusion [Unknown]
  - Erythema [Unknown]
  - Pain in extremity [Unknown]
